FAERS Safety Report 25638852 (Version 1)
Quarter: 2025Q3

REPORT INFORMATION
  Report Type: Spontaneous
  Country: None (occurrence: EU)
  Receive Date: 20250804
  Receipt Date: 20250804
  Transmission Date: 20251020
  Serious: Yes (Other)
  Sender: MYLAN
  Company Number: EU-MYLANLABS-2025M1065313

PATIENT
  Age: 64 Year
  Sex: Female

DRUGS (24)
  1. VANCOMYCIN [Suspect]
     Active Substance: VANCOMYCIN
     Indication: Product used for unknown indication
     Dosage: 1000 MILLIGRAM, BID
  2. VANCOMYCIN [Suspect]
     Active Substance: VANCOMYCIN
     Dosage: 1000 MILLIGRAM, BID
     Route: 065
  3. VANCOMYCIN [Suspect]
     Active Substance: VANCOMYCIN
     Dosage: 1000 MILLIGRAM, BID
     Route: 065
  4. VANCOMYCIN [Suspect]
     Active Substance: VANCOMYCIN
     Dosage: 1000 MILLIGRAM, BID
  5. VANCOMYCIN [Suspect]
     Active Substance: VANCOMYCIN
     Dosage: 750 MILLIGRAM, BID
  6. VANCOMYCIN [Suspect]
     Active Substance: VANCOMYCIN
     Dosage: 750 MILLIGRAM, BID
     Route: 065
  7. VANCOMYCIN [Suspect]
     Active Substance: VANCOMYCIN
     Dosage: 750 MILLIGRAM, BID
  8. VANCOMYCIN [Suspect]
     Active Substance: VANCOMYCIN
     Dosage: 750 MILLIGRAM, BID
     Route: 065
  9. VANCOMYCIN [Suspect]
     Active Substance: VANCOMYCIN
     Dosage: 1250 MILLIGRAM, QD
     Route: 065
  10. VANCOMYCIN [Suspect]
     Active Substance: VANCOMYCIN
     Dosage: 1250 MILLIGRAM, QD
     Route: 065
  11. VANCOMYCIN [Suspect]
     Active Substance: VANCOMYCIN
     Dosage: 1250 MILLIGRAM, QD
  12. VANCOMYCIN [Suspect]
     Active Substance: VANCOMYCIN
     Dosage: 1250 MILLIGRAM, QD
  13. GENTAMICIN [Suspect]
     Active Substance: GENTAMICIN
     Indication: Product used for unknown indication
     Dosage: 120 MILLIGRAM, BID
  14. GENTAMICIN [Suspect]
     Active Substance: GENTAMICIN
     Dosage: 120 MILLIGRAM, BID
  15. GENTAMICIN [Suspect]
     Active Substance: GENTAMICIN
     Dosage: 120 MILLIGRAM, BID
     Route: 065
  16. GENTAMICIN [Suspect]
     Active Substance: GENTAMICIN
     Dosage: 120 MILLIGRAM, BID
     Route: 065
  17. GENTAMICIN [Suspect]
     Active Substance: GENTAMICIN
     Dosage: 240 MILLIGRAM, QD
  18. GENTAMICIN [Suspect]
     Active Substance: GENTAMICIN
     Dosage: 240 MILLIGRAM, QD
  19. GENTAMICIN [Suspect]
     Active Substance: GENTAMICIN
     Dosage: 240 MILLIGRAM, QD
     Route: 065
  20. GENTAMICIN [Suspect]
     Active Substance: GENTAMICIN
     Dosage: 240 MILLIGRAM, QD
     Route: 065
  21. GENTAMICIN [Suspect]
     Active Substance: GENTAMICIN
  22. GENTAMICIN [Suspect]
     Active Substance: GENTAMICIN
     Route: 065
  23. GENTAMICIN [Suspect]
     Active Substance: GENTAMICIN
  24. GENTAMICIN [Suspect]
     Active Substance: GENTAMICIN
     Route: 065

REACTIONS (3)
  - Drug interaction [Recovered/Resolved]
  - Renal injury [Recovered/Resolved]
  - Drug level increased [Recovered/Resolved]
